FAERS Safety Report 14072370 (Version 1)
Quarter: 2017Q4

REPORT INFORMATION
  Report Type: Spontaneous
  Country: US (occurrence: None)
  Receive Date: 20171010
  Receipt Date: 20171010
  Transmission Date: 20180321
  Serious: No
  Sender: FDA-Public Use
  Company Number: None

PATIENT
  Age: 46 Year
  Sex: Male

DRUGS (7)
  1. OCALIVA [Suspect]
     Active Substance: OBETICHOLIC ACID
     Indication: BILIARY CIRRHOSIS PRIMARY
     Dosage: 1 TABLET Q OTHER DAY ORAL
     Route: 048
     Dates: start: 20170210
  2. GABAPENTIN. [Concomitant]
     Active Substance: GABAPENTIN
  3. RAMIPRIL. [Concomitant]
     Active Substance: RAMIPRIL
  4. ATORVASTATIN [Concomitant]
     Active Substance: ATORVASTATIN
  5. METFORMIN [Concomitant]
     Active Substance: METFORMIN HYDROCHLORIDE
  6. SOMA [Concomitant]
     Active Substance: CARISOPRODOL
  7. ZETIA [Concomitant]
     Active Substance: EZETIMIBE

REACTIONS (1)
  - Liver function test increased [None]
